FAERS Safety Report 8233683-9 (Version None)
Quarter: 2012Q1

REPORT INFORMATION
  Report Type: 
  Country: None (occurrence: None)
  Receive Date: 20120326
  Receipt Date: 20120320
  Transmission Date: 20120608
  Serious: Yes (Other)
  Sender: FDA-Public Use
  Company Number: PHHY2012CR024956

PATIENT
  Age: 52 Year
  Sex: Male

DRUGS (2)
  1. GLEEVEC [Suspect]
     Dosage: 400 MG, UNK
     Route: 048
     Dates: start: 20040101
  2. GLEEVEC [Suspect]
     Dosage: 800 MG, UNK
     Dates: end: 20110601

REACTIONS (1)
  - DISEASE RECURRENCE [None]
